FAERS Safety Report 8052825-1 (Version None)
Quarter: 2012Q1

REPORT INFORMATION
  Report Type: 
  Country: None (occurrence: None)
  Receive Date: 20120118
  Receipt Date: 20120109
  Transmission Date: 20120608
  Serious: Yes (Hospitalization)
  Sender: FDA-Public Use
  Company Number: FR-SANOFI-AVENTIS-2012SA001335

PATIENT
  Age: 51 Year
  Sex: Male

DRUGS (4)
  1. LASIX [Suspect]
     Route: 065
     Dates: start: 20110204
  2. PIPERACILLIN AND TAZOBACTAM [Concomitant]
     Route: 065
     Dates: start: 20110218, end: 20110227
  3. LOVENOX [Suspect]
     Route: 065
     Dates: start: 20110204, end: 20110228
  4. VANCOMYCIN [Concomitant]
     Route: 065
     Dates: start: 20110218, end: 20110222

REACTIONS (1)
  - EOSINOPHILIA [None]
